FAERS Safety Report 16415361 (Version 2)
Quarter: 2019Q2

REPORT INFORMATION
  Report Type: Report from Study
  Country: DE (occurrence: DE)
  Receive Date: 20190611
  Receipt Date: 20190625
  Transmission Date: 20190711
  Serious: Yes (Disabling, Other)
  Sender: FDA-Public Use
  Company Number: DE-ASTELLAS-2019US023362

PATIENT
  Age: 52 Year
  Sex: Male

DRUGS (1)
  1. ASP2215 [Suspect]
     Active Substance: GILTERITINIB
     Indication: ACUTE MYELOID LEUKAEMIA
     Dosage: UNK UNK, ONCE DAILY
     Route: 048
     Dates: start: 20190515, end: 20190531

REACTIONS (2)
  - Myalgia [Recovering/Resolving]
  - Haemolysis [Recovering/Resolving]

NARRATIVE: CASE EVENT DATE: 20190528
